FAERS Safety Report 17534044 (Version 2)
Quarter: 2020Q1

REPORT INFORMATION
  Report Type: Spontaneous
  Country: DE (occurrence: DE)
  Receive Date: 20200312
  Receipt Date: 20200318
  Transmission Date: 20200409
  Serious: Yes (Life-Threatening, Hospitalization, Disabling, Other)
  Sender: FDA-Public Use
  Company Number: DE-PFIZER INC-2020105324

PATIENT
  Sex: Female

DRUGS (1)
  1. CYTOTEC [Suspect]
     Active Substance: MISOPROSTOL
     Indication: LABOUR INDUCTION
     Dosage: 150 MG, UNK (FIRST 50 MG, THEN 100 MG)
     Route: 064
     Dates: start: 20160803, end: 20160803

REACTIONS (6)
  - Foetal exposure during pregnancy [Unknown]
  - Neonatal asphyxia [Recovered/Resolved with Sequelae]
  - Developmental delay [Recovered/Resolved with Sequelae]
  - Language disorder [Recovered/Resolved with Sequelae]
  - Neonatal hypoxia [Recovered/Resolved with Sequelae]
  - Foetal acidosis [Recovered/Resolved with Sequelae]

NARRATIVE: CASE EVENT DATE: 201608
